FAERS Safety Report 5350829-0 (Version None)
Quarter: 2007Q2

REPORT INFORMATION
  Report Type: 
  Country: None (occurrence: None)
  Receive Date: 20070608
  Receipt Date: 20070601
  Transmission Date: 20071010
  Serious: Yes (Hospitalization)
  Sender: FDA-Public Use
  Company Number: AU-AVENTIS-200715004GDDC

PATIENT
  Sex: Female

DRUGS (3)
  1. LANTUS [Suspect]
     Dosage: DOSE: UNK
  2. AUTOPEN INSULIN INJECTION PEN [Suspect]
  3. DIABEX [Concomitant]
     Dosage: DOSE: UNK

REACTIONS (1)
  - DIABETIC ULCER [None]
